FAERS Safety Report 25188652 (Version 1)
Quarter: 2025Q2

REPORT INFORMATION
  Report Type: Spontaneous
  Country: CA (occurrence: CA)
  Receive Date: 20250411
  Receipt Date: 20250411
  Transmission Date: 20250717
  Serious: Yes (Life-Threatening, Hospitalization)
  Sender: ROCHE
  Company Number: CA-ROCHE-10000252405

PATIENT
  Age: 77 Year
  Sex: Male

DRUGS (6)
  1. TNKASE [Suspect]
     Active Substance: TENECTEPLASE
     Indication: Product used for unknown indication
     Route: 042
  2. ATENOLOL [Concomitant]
     Active Substance: ATENOLOL
  3. HEPARIN SODIUM [Concomitant]
     Active Substance: HEPARIN SODIUM
     Route: 042
  4. RABEPRAZOLE [Concomitant]
     Active Substance: RABEPRAZOLE
  5. SIMVASTATIN [Concomitant]
     Active Substance: SIMVASTATIN
  6. TAMSULOSIN [Concomitant]
     Active Substance: TAMSULOSIN

REACTIONS (13)
  - Aphasia [Recovering/Resolving]
  - Cardiac arrest [Recovering/Resolving]
  - Cerebral haemorrhage [Recovering/Resolving]
  - Confusional state [Recovering/Resolving]
  - Depressed level of consciousness [Recovering/Resolving]
  - Dysarthria [Recovering/Resolving]
  - Dysphagia [Recovering/Resolving]
  - Endotracheal intubation [Recovering/Resolving]
  - Fatigue [Recovering/Resolving]
  - Hemiparesis [Recovering/Resolving]
  - Impulsive behaviour [Recovering/Resolving]
  - Neurologic neglect syndrome [Recovering/Resolving]
  - Pneumonia aspiration [Recovering/Resolving]
